FAERS Safety Report 4453621-4 (Version None)
Quarter: 2004Q3

REPORT INFORMATION
  Report Type: 
  Country: None (occurrence: None)
  Receive Date: 20040907
  Receipt Date: 20040617
  Transmission Date: 20050211
  Serious: Yes (Hospitalization, Other)
  Sender: FDA-Public Use
  Company Number: 2004216256US

PATIENT
  Age: 73 Year
  Sex: Female
  Weight: 57.6 kg

DRUGS (7)
  1. DETROL LA [Suspect]
     Indication: URINARY TRACT INFECTION
     Dosage: 4 MG,QD,ORAL
     Route: 048
  2. ^PRECRONAL^ [Concomitant]
  3. IRON [Concomitant]
  4. NEXIUM [Concomitant]
  5. ASPIRIN [Concomitant]
  6. SPIRONOLACTONE [Concomitant]
  7. CIPRO [Concomitant]

REACTIONS (1)
  - URINARY RETENTION [None]
